FAERS Safety Report 9116640 (Version 2)
Quarter: 2013Q2

REPORT INFORMATION
  Report Type: Spontaneous
  Country: BE (occurrence: BE)
  Receive Date: 20130225
  Receipt Date: 20130401
  Transmission Date: 20140414
  Serious: Yes (Hospitalization, Other)
  Sender: FDA-Public Use
  Company Number: PHHY2013BE018048

PATIENT
  Age: 34 Year
  Sex: Female

DRUGS (4)
  1. GILENYA [Suspect]
     Indication: MULTIPLE SCLEROSIS
     Dosage: UNK
     Route: 048
     Dates: start: 20120222
  2. CYMBALTA [Concomitant]
     Dosage: 60 MG, QD
  3. LYRICA [Concomitant]
     Dosage: 150 MG, QD
  4. PANTOPRAZOLE [Concomitant]
     Dosage: 40 MG, QD

REACTIONS (2)
  - Optic neuritis [Recovering/Resolving]
  - Hypertension [Unknown]
